FAERS Safety Report 19620147 (Version 1)
Quarter: 2021Q3

REPORT INFORMATION
  Report Type: Spontaneous
  Country: US (occurrence: US)
  Receive Date: 20210727
  Receipt Date: 20210727
  Transmission Date: 20211014
  Serious: No
  Sender: FDA-Public Use
  Company Number: None

PATIENT
  Age: 52 Year
  Sex: Female
  Weight: 90 kg

DRUGS (1)
  1. GLATIRAMER ACETATE INJECTION [Suspect]
     Active Substance: GLATIRAMER ACETATE
     Route: 058

REACTIONS (6)
  - Nausea [None]
  - Vertigo [None]
  - Feeling abnormal [None]
  - Injection site pain [None]
  - Dizziness [None]
  - Product substitution issue [None]

NARRATIVE: CASE EVENT DATE: 20210711
